FAERS Safety Report 5814859-4 (Version None)
Quarter: 2008Q3

REPORT INFORMATION
  Report Type: 
  Country: None (occurrence: None)
  Receive Date: 20080718
  Receipt Date: 20080710
  Transmission Date: 20090109
  Serious: Yes (Other)
  Sender: FDA-Public Use
  Company Number: FI-AMGEN-US284376

PATIENT
  Age: 13 Year
  Sex: Female

DRUGS (2)
  1. ENBREL [Suspect]
     Indication: JUVENILE ARTHRITIS
     Route: 058
     Dates: end: 20080101
  2. METHOTREXATE [Concomitant]
     Dosage: 15 MG

REACTIONS (3)
  - APHASIA [None]
  - HEADACHE [None]
  - HYPOAESTHESIA [None]
